FAERS Safety Report 14378048 (Version 1)
Quarter: 2018Q1

REPORT INFORMATION
  Report Type: Report from Study
  Country: FR (occurrence: FR)
  Receive Date: 20180111
  Receipt Date: 20180111
  Transmission Date: 20180509
  Serious: Yes (Other)
  Sender: FDA-Public Use
  Company Number: FR-TEVA-2018-FR-846003

PATIENT
  Sex: Female

DRUGS (17)
  1. METHOTREXATE. [Suspect]
     Active Substance: METHOTREXATE
     Indication: ACUTE LYMPHOCYTIC LEUKAEMIA
     Dosage: 17.5 MG, 1X/WEEK
     Route: 048
  2. VINCRISTINE [Suspect]
     Active Substance: VINCRISTINE
     Indication: ACUTE LYMPHOCYTIC LEUKAEMIA
     Dosage: 1 MG, 1X/DAY:QD (D1, D36,D57)
     Route: 065
     Dates: start: 20170727, end: 20170921
  3. DEXAMETHASONE. [Suspect]
     Active Substance: DEXAMETHASONE
     Indication: ACUTE LYMPHOCYTIC LEUKAEMIA
     Dosage: 22.5 MG, UNK
     Route: 065
     Dates: start: 20170727, end: 20170926
  4. 6-MERCAPTOPURINE MONOHYDRATE [Suspect]
     Active Substance: MERCAPTOPURINE
     Indication: ACUTE LYMPHOCYTIC LEUKAEMIA
     Dosage: 714 MG, 1X/DAY:QD
     Route: 048
     Dates: start: 20170824, end: 20170913
  5. DECTANCYL [Concomitant]
     Active Substance: DEXAMETHASONE
     Indication: HYPERBILIRUBINAEMIA
  6. VINCRISTINE [Suspect]
     Active Substance: VINCRISTINE
     Dosage: (D8, D29,D64)1.1 MG, 1X/DAY:QD
     Route: 065
     Dates: start: 20170803, end: 20170928
  7. CEFTAZIDIME. [Concomitant]
     Active Substance: CEFTAZIDIME
     Indication: HYPERBILIRUBINAEMIA
  8. ADRIGYL [Concomitant]
     Indication: HYPERBILIRUBINAEMIA
  9. VANCOMYCIN [Concomitant]
     Active Substance: VANCOMYCIN
     Indication: HYPERBILIRUBINAEMIA
  10. BACTRIM [Concomitant]
     Active Substance: SULFAMETHOXAZOLE\TRIMETHOPRIM
     Indication: HYPERBILIRUBINAEMIA
  11. INEXIUM                            /01479302/ [Concomitant]
     Active Substance: ESOMEPRAZOLE MAGNESIUM
     Indication: HYPERBILIRUBINAEMIA
  12. PEGASPARGASE [Suspect]
     Active Substance: PEGASPARGASE
     Indication: ACUTE LYMPHOCYTIC LEUKAEMIA
     Dosage: 900 IU, (D8,D36, D64)
     Dates: start: 20170803, end: 20170928
  13. METHOTREXATE. [Suspect]
     Active Substance: METHOTREXATE
     Dosage: 12 MG, (D2, D30, D58)
     Route: 037
     Dates: start: 20170728, end: 20170922
  14. 6-MERCAPTOPURINE MONOHYDRATE [Suspect]
     Active Substance: MERCAPTOPURINE
     Dosage: 735 MG, 1X/DAY:QD
     Route: 048
     Dates: start: 20170727, end: 20170816
  15. DOLIPRANE [Concomitant]
     Active Substance: ACETAMINOPHEN
     Indication: HYPERBILIRUBINAEMIA
  16. FUNGIZONE [Concomitant]
     Active Substance: AMPHOTERICIN B
     Indication: HYPERBILIRUBINAEMIA
  17. DEXAMETHASONE. [Suspect]
     Active Substance: DEXAMETHASONE
     Dosage: 20 MG, UNK
     Route: 065
     Dates: start: 20170824, end: 20170828

REACTIONS (1)
  - Hyperbilirubinaemia [Recovered/Resolved]

NARRATIVE: CASE EVENT DATE: 20170921
